FAERS Safety Report 8326899-4 (Version None)
Quarter: 2012Q2

REPORT INFORMATION
  Report Type: 
  Country: None (occurrence: None)
  Receive Date: 20120501
  Receipt Date: 20120424
  Transmission Date: 20120825
  Serious: Yes (Death)
  Sender: FDA-Public Use
  Company Number: JP-AMGEN-JPNSP2012026516

PATIENT
  Age: 76 Year
  Sex: Female

DRUGS (3)
  1. IMURAN [Concomitant]
     Dosage: 1 DF, QD
     Route: 048
     Dates: start: 20120327, end: 20120409
  2. ROMIPLATE [Suspect]
     Indication: IDIOPATHIC THROMBOCYTOPENIC PURPURA
     Route: 058
     Dates: start: 20120403, end: 20120403
  3. PREDNISOLONE [Concomitant]
     Route: 048
     Dates: start: 20120223, end: 20120409

REACTIONS (1)
  - CEREBRAL INFARCTION [None]
